FAERS Safety Report 4537468-6 (Version None)
Quarter: 2004Q4

REPORT INFORMATION
  Report Type: 
  Country: None (occurrence: None)
  Receive Date: 20041223
  Receipt Date: 20041008
  Transmission Date: 20050328
  Serious: Yes (Other)
  Sender: FDA-Public Use
  Company Number: US-MERCK-0410USA01357

PATIENT
  Age: 61 Year
  Sex: Female
  Weight: 77 kg

DRUGS (4)
  1. VIOXX [Suspect]
     Indication: OSTEOARTHRITIS
     Route: 048
     Dates: start: 20001201, end: 20040930
  2. ATENOLOL [Concomitant]
     Route: 065
  3. ACTONEL [Concomitant]
     Route: 065
  4. GLUCOSAMINE [Concomitant]
     Route: 065

REACTIONS (12)
  - ABDOMINAL PAIN UPPER [None]
  - ANGINA PECTORIS [None]
  - BREAST CANCER [None]
  - BREAST CANCER RECURRENT [None]
  - DIASTOLIC DYSFUNCTION [None]
  - DRUG INEFFECTIVE [None]
  - HYPERHIDROSIS [None]
  - MITRAL VALVE DISEASE [None]
  - MITRAL VALVE INCOMPETENCE [None]
  - MUSCLE SPASMS [None]
  - NAUSEA [None]
  - TRICUSPID VALVE INCOMPETENCE [None]
